FAERS Safety Report 7365032-2 (Version None)
Quarter: 2011Q1

REPORT INFORMATION
  Report Type: 
  Country: None (occurrence: None)
  Receive Date: 20110321
  Receipt Date: 20110317
  Transmission Date: 20110831
  Serious: Yes (Hospitalization)
  Sender: FDA-Public Use
  Company Number: US-ABBOTT-11P-163-0705782-00

PATIENT
  Sex: Male
  Weight: 74.91 kg

DRUGS (5)
  1. NIASPAN [Suspect]
     Dates: start: 20110101
  2. ASPIRIN [Suspect]
     Indication: PROPHYLAXIS
     Dates: start: 20110101, end: 20110101
  3. NIASPAN [Suspect]
     Indication: LOW DENSITY LIPOPROTEIN INCREASED
     Dates: start: 20090101, end: 20110101
  4. ASPIRIN [Suspect]
     Indication: FLUSHING
     Dosage: HALF HOUR BEFORE NIASPAN
     Dates: start: 20090101, end: 20101101
  5. ZYRTEC [Concomitant]
     Indication: HYPERSENSITIVITY
     Dosage: PRN

REACTIONS (6)
  - COLON CANCER [None]
  - FAECES DISCOLOURED [None]
  - FLUSHING [None]
  - HAEMOGLOBIN DECREASED [None]
  - RECTAL HAEMORRHAGE [None]
  - BLOOD IRON DECREASED [None]
